FAERS Safety Report 4279984-0 (Version None)
Quarter: 2004Q1

REPORT INFORMATION
  Report Type: 
  Country: None (occurrence: None)
  Receive Date: 20040121
  Receipt Date: 20030122
  Transmission Date: 20041129
  Serious: Yes (Hospitalization)
  Sender: FDA-Public Use
  Company Number: 2003-01-2850

PATIENT
  Age: 28 Year
  Sex: Female

DRUGS (3)
  1. VIRAFERONPEG [Suspect]
     Indication: HEPATITIS C
     Dates: end: 20021101
  2. REBETOL [Suspect]
     Indication: HEPATITIS C
     Route: 048
     Dates: end: 20021101
  3. SUBUTEX [Suspect]

REACTIONS (1)
  - THROMBOCYTOPENIC PURPURA [None]
